FAERS Safety Report 10242801 (Version 1)
Quarter: 2014Q2

REPORT INFORMATION
  Report Type: Report from Study
  Country: US (occurrence: US)
  Receive Date: 20140618
  Receipt Date: 20140618
  Transmission Date: 20141212
  Serious: Yes (Hospitalization)
  Sender: FDA-Public Use
  Company Number: US-UCBSA-2014001712

PATIENT
  Age: 35 Year
  Sex: Male
  Weight: 110 kg

DRUGS (4)
  1. CERTOLIZUMAB PEGOL CD [Suspect]
     Indication: CROHN^S DISEASE
     Dosage: 400 MG, UNK
     Route: 058
     Dates: start: 20131203
  2. ROBITUSSIN [Concomitant]
     Indication: COUGH
     Dosage: 400 MG, AS NEEDED (PRN)
     Route: 048
  3. PENTASA [Concomitant]
     Dosage: 500 MG, 2X/DAY (BID)
     Route: 048
  4. MULTIVITAMIN [Concomitant]
     Dosage: UNKNOWN

REACTIONS (1)
  - Gastroenteritis viral [Recovered/Resolved]
